FAERS Safety Report 21653654 (Version 1)
Quarter: 2022Q4

REPORT INFORMATION
  Report Type: Spontaneous
  Country: US (occurrence: US)
  Receive Date: 20221129
  Receipt Date: 20221129
  Transmission Date: 20230113
  Serious: No
  Sender: FDA-Public Use
  Company Number: US-ELI_LILLY_AND_COMPANY-US202211013085

PATIENT
  Sex: Female

DRUGS (1)
  1. MOUNJARO [Suspect]
     Active Substance: TIRZEPATIDE
     Indication: Product use in unapproved indication
     Dosage: 2.5 MG, UNKNOWN
     Route: 058
     Dates: start: 20221108

REACTIONS (3)
  - Nasopharyngitis [Unknown]
  - Incorrect dose administered [Unknown]
  - Off label use [Unknown]
